FAERS Safety Report 7224167-5 (Version None)
Quarter: 2011Q1

REPORT INFORMATION
  Report Type: 
  Country: None (occurrence: None)
  Receive Date: 20110106
  Receipt Date: 20110106
  Transmission Date: 20110831
  Serious: Yes (Hospitalization)
  Sender: FDA-Public Use
  Company Number: None

PATIENT
  Age: 21 Year
  Sex: Female
  Weight: 54.8 kg

DRUGS (2)
  1. CIPRO [Suspect]
     Indication: COLITIS
     Dosage: 400 MG EVERY 12 HOURS IV DRIP
     Route: 041
     Dates: start: 20110111
  2. CIPRO [Suspect]
     Indication: GASTROENTERITIS
     Dosage: 400 MG EVERY 12 HOURS IV DRIP
     Route: 041
     Dates: start: 20110111

REACTIONS (1)
  - INJECTION SITE ERYTHEMA [None]
